FAERS Safety Report 20963774 (Version 1)
Quarter: 2022Q2

REPORT INFORMATION
  Report Type: Report from Study
  Country: US (occurrence: US)
  Receive Date: 20220615
  Receipt Date: 20220615
  Transmission Date: 20220721
  Serious: Yes (Other)
  Sender: FDA-Public Use
  Company Number: US-GILEAD-2022-0581308

PATIENT
  Age: 66 Year
  Sex: Female

DRUGS (1)
  1. SACITUZUMAB GOVITECAN [Suspect]
     Active Substance: SACITUZUMAB GOVITECAN
     Indication: Breast cancer female
     Dosage: 560 MG, OVER 1-2 HOURS ON DAYS 1 AND 8 EVERY 21 DAYS
     Route: 042
     Dates: start: 20220204, end: 20220609

REACTIONS (4)
  - Metastases to lung [Unknown]
  - Metastases to liver [Unknown]
  - Blood iron decreased [Unknown]
  - Fatigue [Unknown]

NARRATIVE: CASE EVENT DATE: 20220510
